FAERS Safety Report 11118311 (Version 1)
Quarter: 2015Q2

REPORT INFORMATION
  Report Type: Spontaneous
  Country: US (occurrence: US)
  Receive Date: 20150518
  Receipt Date: 20150518
  Transmission Date: 20150821
  Serious: Yes (Other)
  Sender: FDA-Public Use
  Company Number: US-JNJFOC-20150502011

PATIENT
  Age: 72 Year
  Sex: Female

DRUGS (2)
  1. XARELTO [Suspect]
     Active Substance: RIVAROXABAN
     Indication: CEREBROVASCULAR ACCIDENT PROPHYLAXIS
     Route: 048
     Dates: start: 201404
  2. XARELTO [Suspect]
     Active Substance: RIVAROXABAN
     Indication: ATRIAL FIBRILLATION
     Route: 048
     Dates: start: 201404

REACTIONS (8)
  - Muscle spasms [Recovering/Resolving]
  - Weight decreased [Not Recovered/Not Resolved]
  - Blood urine present [Recovered/Resolved]
  - Blood glucose increased [Recovering/Resolving]
  - Nephrolithiasis [Unknown]
  - Pain in extremity [Recovering/Resolving]
  - Haemorrhage [Recovered/Resolved]
  - Glycosylated haemoglobin increased [Not Recovered/Not Resolved]

NARRATIVE: CASE EVENT DATE: 201407
